FAERS Safety Report 5671962-X (Version None)
Quarter: 2008Q1

REPORT INFORMATION
  Report Type: 
  Country: None (occurrence: None)
  Receive Date: 20080317
  Receipt Date: 20080317
  Transmission Date: 20080703
  Serious: No
  Sender: FDA-Public Use
  Company Number: None

PATIENT
  Age: 40 Year
  Sex: Female
  Weight: 102.0593 kg

DRUGS (2)
  1. EFFEXOR [Suspect]
     Indication: INSOMNIA
     Dosage: 1  75MG TABLET 1 X A DAY PO
     Route: 048
     Dates: start: 20080128, end: 20080229
  2. EFFEXOR [Suspect]
     Indication: STRESS
     Dosage: 1  75MG TABLET 1 X A DAY PO
     Route: 048
     Dates: start: 20080128, end: 20080229

REACTIONS (8)
  - ACTIVITIES OF DAILY LIVING IMPAIRED [None]
  - ANGER [None]
  - DRY MOUTH [None]
  - FEELING ABNORMAL [None]
  - HEAD INJURY [None]
  - HEADACHE [None]
  - NAUSEA [None]
  - VERTIGO [None]
